FAERS Safety Report 12982836 (Version 2)
Quarter: 2017Q1

REPORT INFORMATION
  Report Type: Spontaneous
  Country: US (occurrence: US)
  Receive Date: 20161129
  Receipt Date: 20170104
  Transmission Date: 20170428
  Serious: Yes (Hospitalization)
  Sender: FDA-Public Use
  Company Number: US-PFIZER INC-2015246027

PATIENT
  Age: 73 Year
  Sex: Female

DRUGS (25)
  1. LYRICA [Suspect]
     Active Substance: PREGABALIN
     Dosage: 50 MG, 3X/DAY
     Route: 048
     Dates: start: 20160719
  2. LIDOCAINE HCL [Concomitant]
     Active Substance: LIDOCAINE HYDROCHLORIDE
     Indication: OROPHARYNGEAL PAIN
     Dosage: 10 ML, AS NEEDED
  3. ACETAMINOPHEN AND CODEINE [Concomitant]
     Active Substance: ACETAMINOPHEN\CODEINE PHOSPHATE
     Indication: PAIN
     Dosage: UNK, AS NEEDED (TAKE 1 TABLET BY MOUTH 3 (THREE) DAILY AS NEEDE) (ACETAMINOPHEN-300MG, CODEINE-30MG)
     Route: 048
  4. MYCOSTATIN [Concomitant]
     Active Substance: NYSTATIN
     Indication: RASH
     Dosage: UNK UNK, AS NEEDED (APPLY TOPICALLY 3 (THREE) TIMES DAILY AS NEEDED)
     Route: 061
  5. DRYSOL [Concomitant]
     Active Substance: ALUMINUM CHLORIDE
     Dosage: 20 %, DAILY  (NIGHTLY)
     Route: 061
  6. LIDODERM [Concomitant]
     Active Substance: LIDOCAINE
     Dosage: UNK (700 MG/PATCH) PATCH PLACE 3 PATCHES ONTO SKIN DAILY FOR 30 DAYS, APPLY FOR 12 HOURS OFF FOR 12
  7. KENALOG [Concomitant]
     Active Substance: TRIAMCINOLONE ACETONIDE
     Indication: RASH
     Dosage: 0.1 %, AS NEEDED (TOPICALLY 2 (TWO) TIMES DAILY AS NEEDED. MAXIMUM USE FOR 2 WEEKS.)
     Route: 061
  8. DULCOLAX NOS [Concomitant]
     Active Substance: BISACODYL OR DOCUSATE SODIUM
     Indication: CONSTIPATION
     Dosage: 5 MG, AS NEEDED (5 MG BY MOUTH DAILY AS NEEDED )
     Route: 048
  9. KENALOG [Concomitant]
     Active Substance: TRIAMCINOLONE ACETONIDE
     Indication: PRURITUS
  10. ACETAMINOPHEN AND CODEINE [Concomitant]
     Active Substance: ACETAMINOPHEN\CODEINE PHOSPHATE
     Dosage: UNK, AS NEEDED (1 TABLET BY MOUTH EVERY 6 HOURS) (ACETAMINOPHEN-300MG, CODEINE-30MG)
     Route: 048
  11. PERI-COLACE [Concomitant]
     Active Substance: CASANTHRANOL\DOCUSATE SODIUM
     Dosage: 1 DF, 2X/DAY [CASANTHRANOL 8.6 MG][DOCUSATE SODIUM 50 MG]
     Route: 048
  12. KLONOPIN [Concomitant]
     Active Substance: CLONAZEPAM
     Indication: ANXIETY
     Dosage: 0.5 MG, DAILY (1 TABLET AT 3:00 PM )
     Route: 048
  13. KLONOPIN [Concomitant]
     Active Substance: CLONAZEPAM
     Dosage: 1 MG, 3X/DAY
     Route: 048
  14. RESTASIS [Concomitant]
     Active Substance: CYCLOSPORINE
     Dosage: UNK, 2X/DAY (0.05 % OPHTHALMIC EMULSION PLACE 1 DROP INTO BOTH EYES EVERY 12 (TWELVE) HOURS)
     Route: 047
  15. FLONASE [Concomitant]
     Active Substance: FLUTICASONE PROPIONATE
     Dosage: UNK, DAILY (50 MCG/ACTUATION, 2 SPRAYS BY EACH NARE ROUTE DAILY)
     Route: 045
  16. ZOFRAN [Concomitant]
     Active Substance: ONDANSETRON HYDROCHLORIDE
     Indication: NAUSEA
     Dosage: 4 MG, AS NEEDED (TAKE 1 TABLET (4 MG TOTAL) BY MOUTH EVERY 8 (EIGHT) HOURS IF NEEDED)
  17. MIRALAX [Concomitant]
     Active Substance: POLYETHYLENE GLYCOL 3350
     Indication: CONSTIPATION
     Dosage: 17 G, AS NEEDED (DISSOLVE 1 CAPFUL (17 G) IN 8 OUNCES OF WATER AND DRINK BY MOUTH ONCE DAILY)
     Route: 048
  18. LYRICA [Suspect]
     Active Substance: PREGABALIN
     Indication: FIBROMYALGIA
     Dosage: 25 MG, 3X/DAY
     Route: 048
     Dates: start: 20150703
  19. LYRICA [Suspect]
     Active Substance: PREGABALIN
     Dosage: 50 MG, 3X/DAY
     Route: 048
     Dates: start: 20160210
  20. SYMMETREL [Concomitant]
     Active Substance: AMANTADINE HYDROCHLORIDE
     Dosage: 100 MG, 2X/DAY
     Route: 048
  21. COLACE [Concomitant]
     Active Substance: DOCUSATE SODIUM
     Dosage: 50 MG, 2X/DAY
     Route: 048
  22. AMANTADINE [Concomitant]
     Active Substance: AMANTADINE
     Dosage: 100 MG, UNK (ONE AT NIGHT FOR ONE WEEK THEN STOP)
  23. LACRI LUBE S O P [Concomitant]
     Dosage: 1 UNK, UNK (58.8-42.5%: 1 DROP INTO BOTH EYES DAILY. APPLY THIN LINE TO INNER LOWER EYELID)
  24. MAALOX ANTACID [Concomitant]
     Active Substance: ALUMINUM HYDROXIDE\DIMETHICONE\MAGNESIUM HYDROXIDE
     Dosage: 30 ML, 1X/DAY (ALUMINUM-200MG/5ML, MAGNESIUM HYDROXIDE-200MG/5ML,  SIMETHICONE-20MG/5ML))
     Route: 048
  25. PREVACID [Concomitant]
     Active Substance: LANSOPRAZOLE
     Dosage: 15 MG, DAILY (EVERY MORNING BEFORE BREAKFAST)
     Route: 048

REACTIONS (2)
  - Cardiac failure [Unknown]
  - Coronary artery thrombosis [Unknown]
